FAERS Safety Report 8767482 (Version 2)
Quarter: 2012Q4

REPORT INFORMATION
  Report Type: 
  Country: DE (occurrence: DE)
  Receive Date: 20120831
  Receipt Date: 20120831
  Transmission Date: 20130627
  Serious: Yes (Hospitalization, Other)
  Sender: FDA-Public Use
  Company Number: DE-BAYER-2011-024568

PATIENT
  Age: 42 Year
  Sex: Female

DRUGS (3)
  1. AVALOX [Suspect]
     Dosage: UNK
     Route: 048
     Dates: start: 20001116, end: 200011
  2. ORELOX [Concomitant]
     Indication: BRONCHITIS BACTERIAL
     Dosage: UNK
     Dates: start: 200010, end: 2000
  3. ZITHROMAX [Concomitant]
     Indication: BRONCHITIS BACTERIAL
     Dosage: UNK
     Dates: start: 2000

REACTIONS (13)
  - Liver injury [None]
  - Liver function test abnormal [None]
  - Gamma-glutamyltransferase increased [None]
  - Drug intolerance [None]
  - Hepatic pain [None]
  - Hepatitis [None]
  - Diarrhoea [Recovered/Resolved]
  - Rectal tenesmus [Recovered/Resolved]
  - Faeces discoloured [Recovered/Resolved]
  - Decreased activity [None]
  - Respiratory tract infection [None]
  - Cough [None]
  - Sputum purulent [None]
